FAERS Safety Report 18624142 (Version 2)
Quarter: 2025Q3

REPORT INFORMATION
  Report Type: Report from Study
  Country: EU (occurrence: EU)
  Receive Date: 20201216
  Receipt Date: 20250711
  Transmission Date: 20251021
  Serious: Yes (Hospitalization, Other)
  Sender: NOVARTIS
  Company Number: EU-NOVARTISPH-NVSC2020NL280272

PATIENT
  Age: 25 Year
  Sex: Female

DRUGS (6)
  1. ILARIS [Suspect]
     Active Substance: CANAKINUMAB
     Indication: Chronic infantile neurological cutaneous and articular syndrome
     Dosage: 1 DF, Q4W
     Route: 058
  2. ILARIS [Suspect]
     Active Substance: CANAKINUMAB
     Dosage: 1 DF, Q4W
     Route: 058
     Dates: start: 20140228
  3. ILARIS [Suspect]
     Active Substance: CANAKINUMAB
     Dosage: 1 DF, Q4W
     Route: 058
     Dates: start: 20200915
  4. ILARIS [Suspect]
     Active Substance: CANAKINUMAB
     Dosage: 1 DF, Q4W
     Route: 058
     Dates: start: 20201013
  5. ILARIS [Suspect]
     Active Substance: CANAKINUMAB
     Dosage: 1 DF, Q4W
     Route: 058
     Dates: start: 20201110
  6. ILARIS [Suspect]
     Active Substance: CANAKINUMAB
     Dosage: 1 DF, Q4W
     Route: 058
     Dates: start: 20201208

REACTIONS (5)
  - Meningitis [Unknown]
  - Musculoskeletal stiffness [Not Recovered/Not Resolved]
  - Mydriasis [Not Recovered/Not Resolved]
  - Headache [Not Recovered/Not Resolved]
  - Off label use [Unknown]

NARRATIVE: CASE EVENT DATE: 20201006
